FAERS Safety Report 6908473-7 (Version None)
Quarter: 2010Q3

REPORT INFORMATION
  Report Type: 
  Country: None (occurrence: None)
  Receive Date: 20100805
  Receipt Date: 20100727
  Transmission Date: 20110219
  Serious: Yes (Other)
  Sender: FDA-Public Use
  Company Number: JP-PFIZER INC-2010093764

PATIENT
  Age: 45 Year
  Sex: Male

DRUGS (4)
  1. LIPITOR [Suspect]
     Dosage: 10 MG DAILY
     Route: 048
     Dates: start: 20090620
  2. VALSARTAN [Concomitant]
     Dosage: UNK
     Route: 048
  3. RETICOLAN [Concomitant]
     Dosage: UNK
     Route: 048
  4. GLICLAZIDE [Concomitant]
     Dosage: UNK
     Route: 048

REACTIONS (1)
  - ANAEMIA MACROCYTIC [None]
